FAERS Safety Report 7069840-7 (Version None)
Quarter: 2010Q4

REPORT INFORMATION
  Report Type: 
  Country: None (occurrence: None)
  Receive Date: 20101028
  Receipt Date: 20100608
  Transmission Date: 20110411
  Serious: No
  Sender: FDA-Public Use
  Company Number: US-WYE-H15710110

PATIENT
  Sex: Female
  Weight: 82.63 kg

DRUGS (12)
  1. PANTOPRAZOLE [Suspect]
     Indication: GASTROOESOPHAGEAL REFLUX DISEASE
     Route: 048
     Dates: start: 20090101, end: 20100501
  2. TOPROL-XL [Concomitant]
  3. HYDROCHLOROTHIAZIDE [Concomitant]
  4. ACETYLSALICYLIC ACID [Concomitant]
  5. ALBUTEROL [Concomitant]
  6. ASCORBIC ACID/ERGOCALCIFEROL/FOLIC ACID/NICOTINAMIDE/PANTHENOL/RETINOL [Concomitant]
  7. GLUCOSAMINE [Concomitant]
  8. SUCRALFATE [Concomitant]
     Indication: GASTROOESOPHAGEAL REFLUX DISEASE
  9. PRAVASTATIN [Concomitant]
  10. SYMBICORT [Concomitant]
     Indication: ASTHMA
  11. REGLAN [Concomitant]
     Indication: GASTROOESOPHAGEAL REFLUX DISEASE
  12. CALCIUM [Concomitant]

REACTIONS (5)
  - CONDITION AGGRAVATED [None]
  - DRUG INEFFECTIVE [None]
  - GASTRITIS [None]
  - GASTROOESOPHAGEAL REFLUX DISEASE [None]
  - PRODUCT SUBSTITUTION ISSUE [None]
